FAERS Safety Report 23745433 (Version 2)
Quarter: 2024Q2

REPORT INFORMATION
  Report Type: Report from Study
  Country: CA (occurrence: CA)
  Receive Date: 20240416
  Receipt Date: 20240521
  Transmission Date: 20240716
  Serious: Yes (Hospitalization)
  Sender: FDA-Public Use
  Company Number: CA-JNJFOC-20240425756

PATIENT
  Age: 64 Year
  Sex: Female
  Weight: 37 kg

DRUGS (1)
  1. REMICADE [Suspect]
     Active Substance: INFLIXIMAB
     Indication: Crohn^s disease
     Route: 041
     Dates: start: 20120131

REACTIONS (4)
  - Neck pain [Unknown]
  - Abdominal discomfort [Unknown]
  - Pancreatic enzymes increased [Unknown]
  - Off label use [Unknown]

NARRATIVE: CASE EVENT DATE: 20240408
